FAERS Safety Report 21388096 (Version 1)
Quarter: 2022Q3

REPORT INFORMATION
  Report Type: Spontaneous
  Country: US (occurrence: US)
  Receive Date: 20220928
  Receipt Date: 20220928
  Transmission Date: 20221026
  Serious: No
  Sender: FDA-Public Use
  Company Number: US-Calliditas-2022CAL00370

PATIENT
  Age: 58 Year
  Sex: Male
  Weight: 82.55 kg

DRUGS (1)
  1. TARPEYO [Suspect]
     Active Substance: BUDESONIDE
     Indication: Haematuria
     Dosage: 16MG (4 CAPSULES) DAILY
     Route: 048
     Dates: start: 20220830

REACTIONS (1)
  - No adverse event [Unknown]
